FAERS Safety Report 4448941-3 (Version None)
Quarter: 2004Q3

REPORT INFORMATION
  Report Type: 
  Country: None (occurrence: None)
  Receive Date: 20040909
  Receipt Date: 20040827
  Transmission Date: 20050211
  Serious: Yes (Hospitalization, Other)
  Sender: FDA-Public Use
  Company Number: 2004061152

PATIENT
  Age: 67 Year
  Sex: Female
  Weight: 96.6162 kg

DRUGS (23)
  1. NEURONTIN [Suspect]
     Indication: BACK PAIN
     Dosage: 2700 MG (300 MG, 9 IN 1 D), ORAL
     Route: 048
     Dates: start: 19990101, end: 20020101
  2. NEURONTIN [Suspect]
     Indication: NEUROPATHIC PAIN
     Dosage: 2700 MG (300 MG, 9 IN 1 D), ORAL
     Route: 048
     Dates: start: 19990101, end: 20020101
  3. NEURONTIN [Suspect]
     Indication: PAIN IN EXTREMITY
     Dosage: 2700 MG (300 MG, 9 IN 1 D), ORAL
     Route: 048
     Dates: start: 19990101, end: 20020101
  4. BEXTRA [Suspect]
     Indication: BACK PAIN
     Dosage: 40 MG (20 MG, 2 IN 1 D), ORAL
     Route: 048
     Dates: start: 20030101, end: 20030101
  5. CELEBREX [Suspect]
     Indication: BACK PAIN
     Dosage: 400 MG (200 MG, 2 IN 1 D), ORAL
     Route: 048
  6. ALL OTHER THERAPEUTIC PRODUCTS (ALL OTHER THERAPEUTIC PRODUCTS) [Suspect]
     Indication: LUNG NEOPLASM MALIGNANT
     Dates: start: 20040101, end: 20040101
  7. LEVOTHYROXINE SODIUM [Concomitant]
  8. LOSARTAN POTASSIUM [Concomitant]
  9. FEMARA [Concomitant]
  10. LORTAB [Concomitant]
  11. DOXAZOSIN MESYLATE [Concomitant]
  12. VALSARTAN (VALSARTAN) [Concomitant]
  13. GLIPIZIDE [Concomitant]
  14. METFORMIN HCL [Concomitant]
  15. PIOGLITAZONE HCL [Concomitant]
  16. CYCLOBENAZAPRINE HYDROCHLORIDE (CYCLOBENZAPRINE HYDROCHLORIDE) [Concomitant]
  17. DIAZEPAM [Concomitant]
  18. MULTIVITAMINS (ASCORBIC ACID, ERGOCALCIFEROL, FOLIC ACID, NICOTINAMIDE [Concomitant]
  19. TOCOPHEROL CONCENTRATE CAP [Concomitant]
  20. OCUVITE (ASCORBIC ACID, RETINOL, TOCOPHEROL) [Concomitant]
  21. CALCIUM (CALCIUM) [Concomitant]
  22. RETINOL (RETINOL) [Concomitant]
  23. VITAMIN D (VITAMIN D) [Concomitant]

REACTIONS (6)
  - BACK PAIN [None]
  - BALANCE DISORDER [None]
  - BREAST CANCER [None]
  - DRUG INEFFECTIVE [None]
  - LUNG NEOPLASM MALIGNANT [None]
  - SUICIDAL IDEATION [None]
